FAERS Safety Report 14743880 (Version 1)
Quarter: 2018Q2

REPORT INFORMATION
  Report Type: Report from Study
  Country: None (occurrence: DE)
  Receive Date: 20180410
  Receipt Date: 20180410
  Transmission Date: 20180711
  Serious: Yes (Hospitalization)
  Sender: FDA-Public Use
  Company Number: DE-ABBVIE-18K-062-2315780-00

PATIENT
  Sex: Male

DRUGS (1)
  1. DUODOPA [Suspect]
     Active Substance: CARBIDOPA\LEVODOPA
     Indication: PARKINSON^S DISEASE
     Dosage: MD: 4.7ML/H, CRD: 3.7ML/H, CRN: 2.1ML/H, ED: 0.5ML
     Route: 050
     Dates: start: 20140730

REACTIONS (5)
  - Mobility decreased [Unknown]
  - Stoma site discharge [Not Recovered/Not Resolved]
  - Streptococcal infection [Unknown]
  - Stoma site odour [Not Recovered/Not Resolved]
  - Stoma site inflammation [Not Recovered/Not Resolved]

NARRATIVE: CASE EVENT DATE: 2018
